FAERS Safety Report 6136543-2 (Version None)
Quarter: 2009Q1

REPORT INFORMATION
  Report Type: 
  Country: None (occurrence: None)
  Receive Date: 20090330
  Receipt Date: 20090318
  Transmission Date: 20090719
  Serious: Yes (Death)
  Sender: FDA-Public Use
  Company Number: JP-PFIZER INC-2009175286

PATIENT

DRUGS (3)
  1. GENOTROPIN [Suspect]
     Indication: DWARFISM
     Dosage: 0.4 MG, 1X/DAY
     Route: 064
  2. GENOTROPIN [Suspect]
     Indication: GROWTH HORMONE DEFICIENCY
  3. THYRADIN S [Concomitant]
     Dosage: 50 UG, 1X/DAY
     Route: 064

REACTIONS (2)
  - DRUG EXPOSURE DURING PREGNANCY [None]
  - FOETAL HEART RATE ABNORMAL [None]
